FAERS Safety Report 13688606 (Version 1)
Quarter: 2017Q2

REPORT INFORMATION
  Report Type: Spontaneous
  Country: US (occurrence: US)
  Receive Date: 20170623
  Receipt Date: 20170623
  Transmission Date: 20170830
  Serious: No
  Sender: FDA-Public Use
  Company Number: None

PATIENT
  Age: 54 Year
  Sex: Male

DRUGS (7)
  1. LORAZEPAM. [Concomitant]
     Active Substance: LORAZEPAM
  2. PAROXETINE. [Concomitant]
     Active Substance: PAROXETINE
  3. RAMIPRIL. [Concomitant]
     Active Substance: RAMIPRIL
  4. CLOPIDOGREL [Concomitant]
     Active Substance: CLOPIDOGREL BISULFATE
  5. ATOROVASTATIN CALCIUM [Concomitant]
  6. HARVONI [Suspect]
     Active Substance: LEDIPASVIR\SOFOSBUVIR
     Indication: CHRONIC HEPATITIS C
     Route: 048
     Dates: start: 20170421
  7. METOPROLOL TARTRATE. [Concomitant]
     Active Substance: METOPROLOL TARTRATE

REACTIONS (1)
  - Palpitations [None]
